FAERS Safety Report 19106490 (Version 1)
Quarter: 2021Q2

REPORT INFORMATION
  Report Type: Spontaneous
  Country: US (occurrence: US)
  Receive Date: 20210407
  Receipt Date: 20210407
  Transmission Date: 20210717
  Serious: No
  Sender: FDA-Public Use
  Company Number: US-ORGANON-O2104USA000156

PATIENT
  Age: 17 Year
  Sex: Female

DRUGS (1)
  1. NEXPLANON [Suspect]
     Active Substance: ETONOGESTREL
     Indication: CONTRACEPTION
     Dosage: 1 IMPLANT, ONCE
     Route: 059
     Dates: start: 20201026, end: 20201124

REACTIONS (5)
  - Pruritus [Recovered/Resolved]
  - Pain [Recovered/Resolved]
  - Implant site erythema [Unknown]
  - Device expulsion [Unknown]
  - Implant site infection [Recovered/Resolved]

NARRATIVE: CASE EVENT DATE: 2020
